FAERS Safety Report 17085995 (Version 1)
Quarter: 2019Q4

REPORT INFORMATION
  Report Type: Spontaneous
  Country: US (occurrence: US)
  Receive Date: 20191128
  Receipt Date: 20191128
  Transmission Date: 20200122
  Serious: No
  Sender: FDA-Public Use
  Company Number: US-UCBSA-2018046244

PATIENT
  Sex: Female

DRUGS (1)
  1. CIMZIA [Suspect]
     Active Substance: CERTOLIZUMAB PEGOL
     Indication: ARTHRITIS
     Dosage: UNK OTHER
     Route: 058
     Dates: start: 201807

REACTIONS (4)
  - Injection site bruising [Unknown]
  - Drug ineffective [Unknown]
  - Product storage error [Unknown]
  - Injection site swelling [Unknown]

NARRATIVE: CASE EVENT DATE: 2018
